FAERS Safety Report 7265504-5 (Version None)
Quarter: 2011Q1

REPORT INFORMATION
  Report Type: 
  Country: None (occurrence: None)
  Receive Date: 20110131
  Receipt Date: 20110121
  Transmission Date: 20110831
  Serious: Yes (Other)
  Sender: FDA-Public Use
  Company Number: US-ASTRAZENECA-2009SE07267

PATIENT
  Age: 73 Year
  Sex: Female

DRUGS (6)
  1. DARVON [Concomitant]
  2. TYLENOL-500 [Concomitant]
  3. HYDROCODONE [Concomitant]
  4. TRAMADOL HCL [Concomitant]
  5. IBUPROFEN [Concomitant]
  6. PULMICORT FLEXHALER [Suspect]
     Indication: ASTHMA
     Route: 055

REACTIONS (11)
  - POLLAKIURIA [None]
  - ROAD TRAFFIC ACCIDENT [None]
  - RESPIRATORY DISORDER [None]
  - GLAUCOMA [None]
  - HYPERPHAGIA [None]
  - COUGH [None]
  - VOCAL CORD PARALYSIS [None]
  - DYSPHONIA [None]
  - ANEURYSM [None]
  - DRUG DOSE OMISSION [None]
  - JOINT DISLOCATION [None]
